FAERS Safety Report 5436954-4 (Version None)
Quarter: 2007Q3

REPORT INFORMATION
  Report Type: 
  Country: None (occurrence: None)
  Receive Date: 20070831
  Receipt Date: 20070824
  Transmission Date: 20080115
  Serious: Yes (Death, Hospitalization)
  Sender: FDA-Public Use
  Company Number: IN-BAXTER-2007BH007387

PATIENT
  Age: 64 Year
  Sex: Female
  Weight: 64 kg

DRUGS (6)
  1. DIANEAL [Suspect]
     Indication: RENAL FAILURE CHRONIC
     Route: 033
     Dates: start: 20070707, end: 20070822
  2. MIXTARD HUMAN [Concomitant]
     Indication: DIABETES MELLITUS
     Route: 065
     Dates: end: 20070822
  3. MINIPRESS [Concomitant]
     Indication: DRUG USE FOR UNKNOWN INDICATION
     Route: 065
     Dates: end: 20070822
  4. ARKAMIN [Concomitant]
     Indication: DRUG USE FOR UNKNOWN INDICATION
     Route: 065
     Dates: start: 20070807, end: 20070822
  5. FOLVITE [Concomitant]
     Indication: DRUG USE FOR UNKNOWN INDICATION
     Route: 065
     Dates: start: 20070807, end: 20070822
  6. EPOGEN [Concomitant]
     Indication: DRUG USE FOR UNKNOWN INDICATION
     Route: 065
     Dates: start: 20070807, end: 20070822

REACTIONS (5)
  - FALL [None]
  - NAUSEA [None]
  - PERITONITIS [None]
  - SEPSIS [None]
  - VOMITING [None]
